FAERS Safety Report 7189101-5 (Version None)
Quarter: 2010Q4

REPORT INFORMATION
  Report Type: 
  Country: None (occurrence: None)
  Receive Date: 20101222
  Receipt Date: 20100802
  Transmission Date: 20110411
  Serious: No
  Sender: FDA-Public Use
  Company Number: US-AMGEN-KDL428350

PATIENT

DRUGS (4)
  1. ENBREL [Suspect]
     Indication: PRODUCT USED FOR UNKNOWN INDICATION
     Dosage: 50 MG, QWK
     Route: 058
  2. METFORMIN [Concomitant]
     Dosage: 500 MG, UNK
  3. ERGOCALCIFEROL [Concomitant]
     Dosage: 1000 IU, UNK
  4. POTASSIUM [Concomitant]
     Dosage: 25 MEQ, UNK

REACTIONS (3)
  - FATIGUE [None]
  - PRODUCTIVE COUGH [None]
  - SPUTUM DISCOLOURED [None]
